FAERS Safety Report 25788162 (Version 1)
Quarter: 2025Q3

REPORT INFORMATION
  Report Type: Spontaneous
  Country: US (occurrence: US)
  Receive Date: 20250910
  Receipt Date: 20250910
  Transmission Date: 20251020
  Serious: Yes (Hospitalization, Other)
  Sender: BRISTOL-MYERS SQUIBB COMPANY
  Company Number: US-BRISTOL-MYERS SQUIBB COMPANY-2025-124858

PATIENT
  Age: 67 Year
  Sex: Male
  Weight: 81.19 kg

DRUGS (1)
  1. LENALIDOMIDE [Suspect]
     Active Substance: LENALIDOMIDE
     Indication: Follicular lymphoma
     Dates: start: 20250821, end: 20250906

REACTIONS (12)
  - Aspiration [Recovering/Resolving]
  - Dehydration [Recovering/Resolving]
  - Fluid retention [Recovering/Resolving]
  - Decreased appetite [Recovering/Resolving]
  - Loss of consciousness [Recovering/Resolving]
  - Pneumonia [Recovering/Resolving]
  - Asthenia [Recovering/Resolving]
  - Somnolence [Recovering/Resolving]
  - Rash erythematous [Recovering/Resolving]
  - Pain in extremity [Recovering/Resolving]
  - Pain in jaw [Recovering/Resolving]
  - Weight decreased [Recovering/Resolving]

NARRATIVE: CASE EVENT DATE: 20250801
